FAERS Safety Report 9228931 (Version 1)
Quarter: 2013Q2

REPORT INFORMATION
  Report Type: Other
  Country: JP (occurrence: JP)
  Receive Date: 20130412
  Receipt Date: 20130412
  Transmission Date: 20140414
  Serious: Yes (Hospitalization)
  Sender: FDA-Public Use
  Company Number: JP-ACTELION-A-CH2013-81676

PATIENT
  Age: 21 Year
  Sex: Female

DRUGS (2)
  1. TRACLEER [Suspect]
     Indication: SKIN ULCER
     Dosage: UNK MG, UNK
     Route: 048
     Dates: start: 2007
  2. PREDNISOLONE [Concomitant]
     Indication: SKIN ULCER
     Dosage: 20 MG, QD
     Dates: start: 2007

REACTIONS (8)
  - Systemic lupus erythematosus [Unknown]
  - Pyrexia [Unknown]
  - Malaise [Unknown]
  - White blood cell count decreased [Unknown]
  - Platelet count decreased [Unknown]
  - DNA antibody positive [Unknown]
  - Mouth ulceration [Unknown]
  - SLE arthritis [Unknown]
